FAERS Safety Report 6086734-4 (Version None)
Quarter: 2009Q1

REPORT INFORMATION
  Report Type: 
  Country: None (occurrence: None)
  Receive Date: 20090223
  Receipt Date: 20090209
  Transmission Date: 20090719
  Serious: Yes (Hospitalization, Other)
  Sender: FDA-Public Use
  Company Number: JP-PFIZER INC-2009163345

PATIENT

DRUGS (3)
  1. RIFABUTIN [Suspect]
     Indication: MYCOBACTERIUM AVIUM COMPLEX INFECTION
     Dosage: 300 MG, 1X/DAY
     Route: 048
     Dates: start: 20081210, end: 20081223
  2. ETHAMBUTOL DIHYDROCHLORIDE [Concomitant]
     Dates: start: 20081210, end: 20081223
  3. CLARITHROMYCIN [Concomitant]
     Dates: start: 20081210, end: 20081223

REACTIONS (1)
  - RHABDOMYOLYSIS [None]
